FAERS Safety Report 18303664 (Version 1)
Quarter: 2020Q3

REPORT INFORMATION
  Report Type: Spontaneous
  Country: US (occurrence: US)
  Receive Date: 20200923
  Receipt Date: 20200923
  Transmission Date: 20201103
  Serious: Yes (Hospitalization)
  Sender: FDA-Public Use
  Company Number: US-PFIZER INC-2016359037

PATIENT
  Age: 80 Year
  Sex: Female
  Weight: 66 kg

DRUGS (6)
  1. SYMBICORT [Concomitant]
     Active Substance: BUDESONIDE\FORMOTEROL FUMARATE DIHYDRATE
     Indication: CHRONIC OBSTRUCTIVE PULMONARY DISEASE
     Dosage: UNK UNK, DAILY (2 PUFFS DAILY)
     Dates: start: 201906
  2. OXYGEN. [Concomitant]
     Active Substance: OXYGEN
     Indication: CHRONIC OBSTRUCTIVE PULMONARY DISEASE
     Dosage: UNK, DAILY (USES 24/7 )
  3. LYRICA [Suspect]
     Active Substance: PREGABALIN
     Indication: NEUROPATHY PERIPHERAL
     Dosage: 150 MG, 3X/DAY
     Route: 048
  4. COMBIVENT [Concomitant]
     Active Substance: ALBUTEROL SULFATE\IPRATROPIUM BROMIDE
     Indication: CHRONIC OBSTRUCTIVE PULMONARY DISEASE
     Dosage: UNK, 1X/DAY (DOES 1 AT AM AT NIGHT/UP TO 4 PUFFS DAILY AS NEEDED)
     Dates: start: 201906
  5. LYRICA [Suspect]
     Active Substance: PREGABALIN
     Indication: NECK SURGERY
  6. LYRICA [Suspect]
     Active Substance: PREGABALIN
     Indication: SPINAL OPERATION

REACTIONS (6)
  - Blood pressure abnormal [Unknown]
  - Fall [Recovered/Resolved]
  - Joint swelling [Unknown]
  - Ankle fracture [Recovered/Resolved]
  - Dizziness [Not Recovered/Not Resolved]
  - Arthralgia [Unknown]

NARRATIVE: CASE EVENT DATE: 20200215
